FAERS Safety Report 18836796 (Version 1)
Quarter: 2021Q1

REPORT INFORMATION
  Report Type: Spontaneous
  Country: US (occurrence: US)
  Receive Date: 20210203
  Receipt Date: 20210203
  Transmission Date: 20210419
  Serious: No
  Sender: FDA-Public Use
  Company Number: US-ALLERGAN-2014224US

PATIENT
  Age: 73 Year
  Sex: Female

DRUGS (3)
  1. JUVEDERM ULTRA XC [Concomitant]
     Active Substance: HYALURONIC ACID\LIDOCAINE HYDROCHLORIDE
     Dosage: UNK
     Dates: start: 202001
  2. BOTOX COSMETIC [Suspect]
     Active Substance: ONABOTULINUMTOXINA
     Indication: PRODUCT USED FOR UNKNOWN INDICATION
     Dosage: UNK, SINGLE
  3. JUVEDERM ULTRA XC [Concomitant]
     Active Substance: HYALURONIC ACID\LIDOCAINE HYDROCHLORIDE

REACTIONS (1)
  - Drug ineffective [Unknown]
